FAERS Safety Report 7362263-2 (Version None)
Quarter: 2011Q1

REPORT INFORMATION
  Report Type: 
  Country: None (occurrence: None)
  Receive Date: 20110315
  Receipt Date: 20110315
  Transmission Date: 20110831
  Serious: Yes (Other)
  Sender: FDA-Public Use
  Company Number: None

PATIENT
  Sex: Female
  Weight: 87.0906 kg

DRUGS (7)
  1. LASIX [Concomitant]
  2. ULORIC [Suspect]
     Indication: GOUT
     Dosage: 80 MG ONE PER DAY PO
     Route: 048
     Dates: start: 20110105, end: 20110114
  3. BENICAR [Concomitant]
  4. IMDUR [Concomitant]
  5. NEXIUM [Concomitant]
  6. BYSTOLIC [Concomitant]
  7. LEVOXYL [Concomitant]

REACTIONS (5)
  - ABASIA [None]
  - STOMATITIS [None]
  - DYSPNOEA [None]
  - DYSSTASIA [None]
  - ASTHENIA [None]
